FAERS Safety Report 14973212 (Version 6)
Quarter: 2022Q2

REPORT INFORMATION
  Report Type: Report from Study
  Country: BR (occurrence: BR)
  Receive Date: 20180605
  Receipt Date: 20220601
  Transmission Date: 20220721
  Serious: Yes (Hospitalization, Other)
  Sender: FDA-Public Use
  Company Number: BR-BIOGEN-2018BI00587843

PATIENT
  Sex: Female
  Weight: 78 kg

DRUGS (4)
  1. AVONEX PEN [Suspect]
     Active Substance: INTERFERON BETA-1A
     Indication: Multiple sclerosis
     Route: 050
     Dates: start: 201302, end: 201712
  2. AVONEX PEN [Suspect]
     Active Substance: INTERFERON BETA-1A
     Route: 030
     Dates: start: 2014, end: 201712
  3. AVONEX PEN [Suspect]
     Active Substance: INTERFERON BETA-1A
     Route: 050
     Dates: start: 201302, end: 201701
  4. AVONEX PEN [Suspect]
     Active Substance: INTERFERON BETA-1A

REACTIONS (15)
  - Myocardial infarction [Unknown]
  - Blindness transient [Recovered/Resolved with Sequelae]
  - Multiple sclerosis relapse [Recovered/Resolved with Sequelae]
  - Tachyarrhythmia [Recovered/Resolved]
  - Back pain [Unknown]
  - Decreased immune responsiveness [Unknown]
  - Magnetic resonance imaging abnormal [Recovered/Resolved]
  - Influenza [Unknown]
  - Drug ineffective [Unknown]
  - Cranial nerve infection [Recovered/Resolved]
  - Muscular weakness [Not Recovered/Not Resolved]
  - Limb discomfort [Not Recovered/Not Resolved]
  - Headache [Unknown]
  - Arthralgia [Not Recovered/Not Resolved]
  - Motor dysfunction [Recovered/Resolved with Sequelae]

NARRATIVE: CASE EVENT DATE: 20170101
